FAERS Safety Report 26133855 (Version 1)
Quarter: 2025Q4

REPORT INFORMATION
  Report Type: Report from Study
  Country: ZA (occurrence: ZA)
  Receive Date: 20251209
  Receipt Date: 20251209
  Transmission Date: 20260118
  Serious: Yes (Other)
  Sender: ROCHE
  Company Number: ZA-ROCHE-10000448004

PATIENT
  Sex: Female

DRUGS (1)
  1. OCREVUS [Suspect]
     Active Substance: OCRELIZUMAB
     Indication: Relapsing-remitting multiple sclerosis
     Dosage: THERE AFTER 600 MG, EVERY 06 MONTHS.
     Route: 042
     Dates: start: 20250117

REACTIONS (5)
  - Demyelination [Unknown]
  - Demyelination [Unknown]
  - Demyelination [Unknown]
  - Optic nerve disorder [Unknown]
  - Paranasal sinus mucosal hypertrophy [Unknown]
